FAERS Safety Report 8597405-4 (Version None)
Quarter: 2012Q3

REPORT INFORMATION
  Report Type: 
  Country: None (occurrence: None)
  Receive Date: 20120801
  Receipt Date: 20120716
  Transmission Date: 20120928
  Serious: Yes (Hospitalization)
  Sender: FDA-Public Use
  Company Number: THQ2012A06552

PATIENT
  Age: 45 Year
  Sex: Female

DRUGS (5)
  1. LEVEMIR [Concomitant]
  2. LANSOPRAZOLE [Suspect]
     Indication: PRODUCT USED FOR UNKNOWN INDICATION
     Dosage: PER ORAL
     Route: 048
     Dates: start: 20110924
  3. VOLTAREN [Suspect]
     Dosage: 150 MG (150 MG, 1 IN 1 D) PER ORAL
     Route: 048
     Dates: start: 20110924, end: 20111002
  4. KETOPROFEN [Suspect]
     Indication: PRODUCT USED FOR UNKNOWN INDICATION
     Dosage: 200 MG (200 MG, 1 IN 1 D) PER ORAL
     Route: 048
     Dates: start: 20120203, end: 20120210
  5. XELODA [Concomitant]

REACTIONS (3)
  - GAMMA-GLUTAMYLTRANSFERASE INCREASED [None]
  - ALANINE AMINOTRANSFERASE INCREASED [None]
  - CHOLESTATIC LIVER INJURY [None]
